FAERS Safety Report 10154048 (Version 3)
Quarter: 2015Q1

REPORT INFORMATION
  Report Type: Spontaneous
  Country: US (occurrence: None)
  Receive Date: 20140502
  Receipt Date: 20150128
  Transmission Date: 20150720
  Serious: Yes (Hospitalization, Other)
  Sender: FDA-Public Use
  Company Number: ADR-2014-00669

PATIENT
  Age: 33 Year
  Sex: Male

DRUGS (6)
  1. COMPOUNDED BACLOFEN INTRATHECAL [Suspect]
     Active Substance: BACLOFEN
  2. LIDOCAINE. [Suspect]
     Active Substance: LIDOCAINE
  3. MORPHINE [Suspect]
     Active Substance: MORPHINE
  4. LIORESAL [Suspect]
     Active Substance: BACLOFEN
     Indication: MUSCLE SPASTICITY
  5. NARCOTICS [Suspect]
     Active Substance: UNSPECIFIED INGREDIENT
  6. CLONIDINE. [Suspect]
     Active Substance: CLONIDINE

REACTIONS (12)
  - Overdose [None]
  - Spinal fracture [None]
  - Inadequate analgesia [None]
  - Pain [None]
  - Bladder disorder [None]
  - Device malfunction [None]
  - Therapeutic response decreased [None]
  - Device alarm issue [None]
  - Activities of daily living impaired [None]
  - Road traffic accident [None]
  - Post-traumatic pain [None]
  - Device breakage [None]
